FAERS Safety Report 8404519-8 (Version None)
Quarter: 2012Q2

REPORT INFORMATION
  Report Type: 
  Country: None (occurrence: None)
  Receive Date: 20120601
  Receipt Date: 20120523
  Transmission Date: 20120825
  Serious: Yes (Other)
  Sender: FDA-Public Use
  Company Number: CH-ASTRAZENECA-2012SE33643

PATIENT
  Age: 76 Year
  Sex: Female

DRUGS (3)
  1. LORAZEPAM [Concomitant]
     Route: 048
     Dates: start: 20020101
  2. LORAZEPAM [Concomitant]
     Route: 048
  3. ATACAND [Suspect]
     Indication: HYPERTENSION
     Route: 048
     Dates: start: 20120327, end: 20120328

REACTIONS (6)
  - ANXIETY [None]
  - HYPERTENSION [None]
  - CHEST DISCOMFORT [None]
  - APATHY [None]
  - AFFECT LABILITY [None]
  - AGITATION [None]
